FAERS Safety Report 20737907 (Version 1)
Quarter: 2022Q2

REPORT INFORMATION
  Report Type: Other
  Country: IT (occurrence: None)
  Receive Date: 20220422
  Receipt Date: 20220422
  Transmission Date: 20220720
  Serious: Yes (Other)
  Sender: FDA-Public Use
  Company Number: IT-Saptalis Pharmaceuticals,LLC-000225

PATIENT
  Age: 6 Year
  Sex: Male

DRUGS (3)
  1. CLOBETASOL [Suspect]
     Active Substance: CLOBETASOL
     Indication: Mucosal inflammation
     Dosage: 0.56 MG OF CP PER DAY
     Route: 048
  2. PREDNISOLONE [Concomitant]
     Active Substance: PREDNISOLONE
     Indication: Product used for unknown indication
     Dosage: 0.5-1 MG/KG/DAY
  3. INFLIXIMAB [Concomitant]
     Active Substance: INFLIXIMAB
     Indication: Product used for unknown indication
     Dosage: 300 MG, EVERY EIGHT WEEKS

REACTIONS (3)
  - Cushing^s syndrome [Recovered/Resolved]
  - Intentional product misuse [Unknown]
  - Disease progression [Recovered/Resolved]
